FAERS Safety Report 4711471-5 (Version None)
Quarter: 2005Q3

REPORT INFORMATION
  Report Type: 
  Country: None (occurrence: None)
  Receive Date: 20050711
  Receipt Date: 20050624
  Transmission Date: 20060218
  Serious: Yes (Other)
  Sender: FDA-Public Use
  Company Number: 2005092472

PATIENT
  Sex: Male
  Weight: 81.6475 kg

DRUGS (1)
  1. UNISOM [Suspect]
     Indication: INSOMNIA
     Dosage: TABS ONCE, ORAL
     Route: 048
     Dates: start: 20050623, end: 20050623

REACTIONS (1)
  - HYPERSOMNIA [None]
